FAERS Safety Report 9800778 (Version 3)
Quarter: 2014Q1

REPORT INFORMATION
  Report Type: Spontaneous
  Country: US (occurrence: US)
  Receive Date: 20140107
  Receipt Date: 20140123
  Transmission Date: 20141002
  Serious: Yes (Life-Threatening, Hospitalization, Other)
  Sender: FDA-Public Use
  Company Number: US-PFIZER INC-2014001353

PATIENT
  Age: 81 Year
  Sex: Male
  Weight: 67.57 kg

DRUGS (3)
  1. TOVIAZ [Suspect]
     Dosage: 8 MG, 1X/DAY
     Route: 048
     Dates: start: 2009, end: 20140114
  2. ALFUZOSIN HYDROCHLORIDE [Suspect]
     Dosage: 10 MG, 1X/DAY
     Route: 048
     Dates: start: 2009, end: 2013
  3. ALFUZOSIN HYDROCHLORIDE [Suspect]
     Dosage: 10 MG, UNK
     Route: 048
     Dates: start: 201401

REACTIONS (14)
  - Dyspnoea [Unknown]
  - Incorrect product storage [Unknown]
  - Product physical issue [Unknown]
  - Urinary retention [Unknown]
  - Dyspnoea [Unknown]
  - Haemorrhage [Unknown]
  - Urinary retention [Recovered/Resolved]
  - Prostatic disorder [Unknown]
  - Drug ineffective [Unknown]
  - Skin irritation [Recovered/Resolved]
  - Pruritus [Recovered/Resolved]
  - Insomnia [Recovered/Resolved]
  - Urinary incontinence [Unknown]
  - Pollakiuria [Unknown]
